FAERS Safety Report 5996429-0 (Version None)
Quarter: 2008Q4

REPORT INFORMATION
  Report Type: 
  Country: None (occurrence: None)
  Receive Date: 20081212
  Receipt Date: 20081014
  Transmission Date: 20090506
  Serious: No
  Sender: FDA-Public Use
  Company Number: US-ABBOTT-08P-163-0482512-00

PATIENT
  Sex: Female
  Weight: 59.928 kg

DRUGS (3)
  1. HUMIRA [Suspect]
     Indication: PSORIASIS
     Route: 058
     Dates: start: 20080918
  2. TACLONEX OINTMENT [Concomitant]
     Indication: PSORIASIS
     Route: 061
     Dates: start: 20070101
  3. THYROID TAB [Concomitant]
     Indication: HORMONE REPLACEMENT THERAPY
     Route: 048
     Dates: start: 19840101

REACTIONS (7)
  - ABDOMINAL PAIN UPPER [None]
  - BACK PAIN [None]
  - DIARRHOEA [None]
  - MICTURITION URGENCY [None]
  - PAIN [None]
  - POLLAKIURIA [None]
  - URINARY TRACT INFECTION [None]
